FAERS Safety Report 14431305 (Version 3)
Quarter: 2018Q3

REPORT INFORMATION
  Report Type: Spontaneous
  Country: US (occurrence: US)
  Receive Date: 20180124
  Receipt Date: 20180801
  Transmission Date: 20181010
  Serious: No
  Sender: FDA-Public Use
  Company Number: US-PFIZER INC-2018029963

PATIENT
  Age: 53 Year
  Sex: Female
  Weight: 66 kg

DRUGS (5)
  1. HYDROCORTISONE. [Suspect]
     Active Substance: HYDROCORTISONE
     Dosage: 10 MG, UNK
  2. HYDROCORTISONE. [Suspect]
     Active Substance: HYDROCORTISONE
     Indication: ADRENAL INSUFFICIENCY
     Dosage: 10 MG, UNK
  3. HYDROCORTISONE. [Suspect]
     Active Substance: HYDROCORTISONE
     Dosage: 15 MG, UNK
  4. HYDROCORTISONE. [Suspect]
     Active Substance: HYDROCORTISONE
     Dosage: UNK, DAILY (5?10MG)
     Route: 048
  5. FENTANYL. [Concomitant]
     Active Substance: FENTANYL
     Dosage: 100 UG, SINGLE
     Route: 042
     Dates: start: 20171130

REACTIONS (1)
  - Drug effect incomplete [Unknown]
